FAERS Safety Report 7789635-6 (Version None)
Quarter: 2011Q3

REPORT INFORMATION
  Report Type: 
  Country: None (occurrence: None)
  Receive Date: 20110930
  Receipt Date: 20110926
  Transmission Date: 20111222
  Serious: Yes (Hospitalization)
  Sender: FDA-Public Use
  Company Number: CG-MERCK-1109USA02703

PATIENT
  Age: 53 Year
  Sex: Male
  Weight: 58 kg

DRUGS (1)
  1. STROMECTOL [Suspect]
     Indication: ONCHOCERCIASIS
     Route: 048
     Dates: start: 20110816, end: 20110816

REACTIONS (9)
  - HEADACHE [None]
  - DYSARTHRIA [None]
  - ASTHENIA [None]
  - ABNORMAL BEHAVIOUR [None]
  - PYREXIA [None]
  - ABDOMINAL PAIN UPPER [None]
  - DEPRESSED LEVEL OF CONSCIOUSNESS [None]
  - CONJUNCTIVAL HAEMORRHAGE [None]
  - ENCEPHALOPATHY [None]
